FAERS Safety Report 14780611 (Version 2)
Quarter: 2018Q2

REPORT INFORMATION
  Report Type: Spontaneous
  Country: FR (occurrence: FR)
  Receive Date: 20180419
  Receipt Date: 20180423
  Transmission Date: 20180711
  Serious: Yes (Hospitalization, Other)
  Sender: FDA-Public Use
  Company Number: FR-MYLANLABS-2018M1025841

PATIENT
  Age: 87 Year
  Sex: Female

DRUGS (2)
  1. APROKAM [Suspect]
     Active Substance: CEFUROXIME SODIUM
     Indication: CATARACT OPERATION
     Route: 050
  2. EPINEPHRINE. [Suspect]
     Active Substance: EPINEPHRINE
     Indication: CATARACT OPERATION
     Dosage: UNK
     Route: 050

REACTIONS (2)
  - Cataract operation complication [Recovered/Resolved with Sequelae]
  - Visual acuity reduced [Recovered/Resolved with Sequelae]

NARRATIVE: CASE EVENT DATE: 20170616
